FAERS Safety Report 17111382 (Version 1)
Quarter: 2019Q4

REPORT INFORMATION
  Report Type: Spontaneous
  Country: US (occurrence: US)
  Receive Date: 20191203
  Receipt Date: 20191203
  Transmission Date: 20200122
  Serious: No
  Sender: FDA-Public Use
  Company Number: None

PATIENT
  Age: 49 Year
  Sex: Female
  Weight: 59.85 kg

DRUGS (1)
  1. FLUTICASONE PROPIONATE/SALMETEROL DISKUS INHALATION POWDER 250/50 MCG. [Suspect]
     Active Substance: FLUTICASONE PROPIONATE\SALMETEROL XINAFOATE
     Indication: ASTHMA
     Dosage: ?          OTHER STRENGTH:MCG;QUANTITY:60 INHALATION(S);?
     Route: 055
     Dates: start: 20191128, end: 20191202

REACTIONS (2)
  - Gingival swelling [None]
  - Gingival discomfort [None]

NARRATIVE: CASE EVENT DATE: 20191128
